FAERS Safety Report 22010800 (Version 1)
Quarter: 2023Q1

REPORT INFORMATION
  Report Type: Spontaneous
  Country: US (occurrence: US)
  Receive Date: 20230220
  Receipt Date: 20230220
  Transmission Date: 20230417
  Serious: No
  Sender: FDA-Public Use
  Company Number: US-TEVA-2023-US-2854076

PATIENT
  Age: 67 Year
  Sex: Male

DRUGS (1)
  1. LIDOCAINE [Suspect]
     Active Substance: LIDOCAINE
     Indication: Product used for unknown indication
     Dosage: 5 PERCENT
     Route: 062
     Dates: start: 20230131

REACTIONS (2)
  - Application site acne [Unknown]
  - Product adhesion issue [Unknown]

NARRATIVE: CASE EVENT DATE: 20230131
